FAERS Safety Report 9787554 (Version 1)
Quarter: 2013Q4

REPORT INFORMATION
  Report Type: Spontaneous
  Country: GB (occurrence: GB)
  Receive Date: 20131230
  Receipt Date: 20131230
  Transmission Date: 20140711
  Serious: Yes (Other)
  Sender: FDA-Public Use
  Company Number: GB-ROCHE-1327289

PATIENT
  Age: 21 Year
  Sex: Female
  Weight: 89 kg

DRUGS (9)
  1. XOLAIR [Suspect]
     Indication: ASTHMA
     Route: 058
     Dates: start: 20111208
  2. PARACETAMOL [Suspect]
     Indication: PRODUCT USED FOR UNKNOWN INDICATION
     Route: 065
  3. PREDNISOLONE [Concomitant]
  4. SERETIDE [Concomitant]
  5. SALBUTAMOL [Concomitant]
  6. SLO-PHYLLIN [Concomitant]
  7. MONTELUKAST [Concomitant]
  8. LEVOCETIRIZINE [Concomitant]
  9. CALCICHEW [Concomitant]

REACTIONS (2)
  - Depressed mood [Unknown]
  - Intentional overdose [Unknown]
